FAERS Safety Report 9180158 (Version 1)
Quarter: 2012Q4

REPORT INFORMATION
  Report Type: 
  Country: AU (occurrence: AU)
  Receive Date: 20121029
  Receipt Date: 20121029
  Transmission Date: 20130627
  Serious: Yes (Hospitalization, Other)
  Sender: FDA-Public Use
  Company Number: AU-009507513-1209AUS007620

PATIENT
  Age: 54 Year
  Sex: Female
  Weight: 72 kg

DRUGS (2)
  1. REBETOL [Suspect]
     Dosage: 800 mg, qd
     Route: 048
     Dates: start: 20110608, end: 20110708
  2. PEGINTERFERON ALFA-2A [Suspect]
     Dosage: 180 Microgram, qw
     Dates: start: 20110608, end: 20110708

REACTIONS (3)
  - Pancytopenia [Recovered/Resolved]
  - Delusion [Recovered/Resolved]
  - Condition aggravated [Recovered/Resolved]
